FAERS Safety Report 9242699 (Version 2)
Quarter: 2014Q1

REPORT INFORMATION
  Report Type: Report from Study
  Country: MX (occurrence: MX)
  Receive Date: 20130419
  Receipt Date: 20140318
  Transmission Date: 20141002
  Serious: Yes (Other)
  Sender: FDA-Public Use
  Company Number: PHHY2013MX036974

PATIENT
  Age: 52 Year
  Sex: Female

DRUGS (1)
  1. EXFORGE [Suspect]
     Indication: HYPERTENSION
     Dosage: 1 DF (160 MG VALS/10 MG AMLO), DAILY
     Route: 048
     Dates: start: 200906

REACTIONS (8)
  - Ulcer [Recovered/Resolved]
  - Abdominal pain upper [Not Recovered/Not Resolved]
  - Blood pressure increased [Not Recovered/Not Resolved]
  - Fluid retention [Recovering/Resolving]
  - Oedema peripheral [Unknown]
  - Blood triglycerides increased [Recovering/Resolving]
  - Gastritis [Unknown]
  - Weight decreased [Unknown]
